FAERS Safety Report 18674926 (Version 1)
Quarter: 2020Q4

REPORT INFORMATION
  Report Type: Spontaneous
  Country: DE (occurrence: DE)
  Receive Date: 20201229
  Receipt Date: 20201229
  Transmission Date: 20210114
  Serious: Yes (Other)
  Sender: FDA-Public Use
  Company Number: None

PATIENT
  Age: 51 Year
  Sex: Female
  Weight: 99 kg

DRUGS (11)
  1. ATORVASTATIN [Concomitant]
     Active Substance: ATORVASTATIN
  2. VITAMIN D3 [Concomitant]
     Active Substance: CHOLECALCIFEROL
  3. DICLOFENAC [Concomitant]
     Active Substance: DICLOFENAC
  4. UNACID [Concomitant]
  5. PRAMIPEXOLE. [Concomitant]
     Active Substance: PRAMIPEXOLE
  6. ROBAXIN [Concomitant]
     Active Substance: METHOCARBAMOL
  7. FLUOXETINE [Concomitant]
     Active Substance: FLUOXETINE HYDROCHLORIDE
  8. TRAMADOL. [Concomitant]
     Active Substance: TRAMADOL
  9. EMGALITY [Suspect]
     Active Substance: GALCANEZUMAB-GNLM
     Indication: CLUSTER HEADACHE
     Dosage: ?          QUANTITY:3 INJECTION(S);OTHER FREQUENCY:MONTHLY;?
     Route: 058
  10. EMGALITY [Suspect]
     Active Substance: GALCANEZUMAB-GNLM
     Indication: MIGRAINE
     Dosage: ?          QUANTITY:3 INJECTION(S);OTHER FREQUENCY:MONTHLY;?
     Route: 058
  11. OLMEPRAZOLE [Concomitant]

REACTIONS (2)
  - Impaired healing [None]
  - Incision site impaired healing [None]

NARRATIVE: CASE EVENT DATE: 20201213
